FAERS Safety Report 7547033-4 (Version None)
Quarter: 2011Q2

REPORT INFORMATION
  Report Type: 
  Country: None (occurrence: None)
  Receive Date: 20110524
  Receipt Date: 20110301
  Transmission Date: 20111010
  Serious: No
  Sender: FDA-Public Use
  Company Number: 028436

PATIENT
  Sex: Female
  Weight: 149 kg

DRUGS (6)
  1. BACLOFEN [Concomitant]
  2. PENTASA [Concomitant]
  3. HYDROCODONE [Concomitant]
  4. IBUPROFEN [Concomitant]
  5. CIMZIA [Suspect]
     Indication: CROHN'S DISEASE
     Dosage: (SUBCUTANEOUS) ; 2 SHOTS SUBCUTANEOUS)
     Route: 058
     Dates: start: 20100801
  6. CIMZIA [Suspect]
     Indication: CROHN'S DISEASE
     Dosage: (SUBCUTANEOUS) ; 2 SHOTS SUBCUTANEOUS)
     Route: 058
     Dates: start: 20100601

REACTIONS (2)
  - ABDOMINAL CAVITY DRAINAGE [None]
  - ABDOMINAL PAIN [None]
